FAERS Safety Report 12951812 (Version 1)
Quarter: 2016Q4

REPORT INFORMATION
  Report Type: Spontaneous
  Country: US (occurrence: US)
  Receive Date: 20161117
  Receipt Date: 20161117
  Transmission Date: 20170207
  Serious: Yes (Other)
  Sender: FDA-Public Use
  Company Number: US-AMGEN-USASP2016159205

PATIENT
  Age: 41 Year
  Sex: Female

DRUGS (1)
  1. ENBREL [Suspect]
     Active Substance: ETANERCEPT
     Indication: PRODUCT USED FOR UNKNOWN INDICATION
     Dosage: 50 MG, QWK
     Route: 058

REACTIONS (7)
  - Vertigo [Unknown]
  - Exposure to mould [Unknown]
  - Dizziness [Unknown]
  - Fungal sepsis [Unknown]
  - Tremor [Unknown]
  - Seizure [Unknown]
  - Heart rate increased [Unknown]
